FAERS Safety Report 8399904-7 (Version None)
Quarter: 2012Q2

REPORT INFORMATION
  Report Type: 
  Country: None (occurrence: None)
  Receive Date: 20120531
  Receipt Date: 20120518
  Transmission Date: 20120825
  Serious: Yes (Hospitalization, Other)
  Sender: FDA-Public Use
  Company Number: US-ELI_LILLY_AND_COMPANY-US201205007615

PATIENT
  Sex: Female

DRUGS (32)
  1. FORTEO [Suspect]
     Indication: OSTEOPOROSIS
     Dosage: 20 UG, QD
  2. POTASSIUM CHLORIDE [Concomitant]
     Dosage: 40 MEQ, EACH MORNING
  3. XOPENEX HFA [Concomitant]
     Dosage: 1.25 MG, TID
  4. CALCIUM [Concomitant]
     Dosage: 2000 MG, QD
  5. TOPAMAX [Concomitant]
     Indication: MIGRAINE
     Dosage: 100 MG, BID
  6. SINGULAIR [Concomitant]
     Dosage: 10 MG, EACH EVENING
  7. MULTI-VITAMIN [Concomitant]
     Dosage: UNK, QD
  8. SPIRONOLACTONE [Concomitant]
     Dosage: 25 MG, QD
  9. OXYCONTIN [Concomitant]
     Dosage: 60 MG, TID
  10. LORAZEPAM [Concomitant]
     Dosage: 1 MG, BID
  11. AZELASTINE HCL [Concomitant]
     Dosage: UNK, BID
  12. PRENATAL VITAMINS                  /01549301/ [Concomitant]
     Dosage: UNK, QD
  13. ANAVAR [Concomitant]
     Dosage: 25 MG, TID
  14. FORTEO [Suspect]
     Dosage: 20 UG, QD
  15. POTASSIUM CHLORIDE [Concomitant]
     Dosage: 20 MEQ, EACH EVENING
  16. WELLBUTRIN [Concomitant]
     Dosage: 300 MG, EACH MORNING
  17. CLARITIN [Concomitant]
     Dosage: 10 MG, QD
  18. VITAMIN D [Concomitant]
     Dosage: 2000 MG, QD
  19. CYMBALTA [Concomitant]
     Dosage: 120 MG, QD
  20. LASIX [Concomitant]
     Dosage: 40 MG, BID
  21. GABAPENTIN [Concomitant]
     Dosage: 800 MG, QID
  22. ROXICODONE [Concomitant]
     Dosage: 30 MG, TID
  23. REQUIP [Concomitant]
     Dosage: 0.25 MG, EACH EVENING
  24. DEXAMETHASONE [Concomitant]
     Dosage: 60 MG, QD
  25. PRIMIDONE [Concomitant]
     Dosage: 100 MG, EACH EVENING
  26. IMITREX [Concomitant]
     Indication: MIGRAINE
     Dosage: 100 MG, PRN
  27. PATANASE [Concomitant]
     Dosage: UNK, BID
  28. TIZANIDINE [Concomitant]
     Dosage: 4 MG, QID
  29. FLUTICASONE FUROATE [Concomitant]
     Dosage: UNK, QD
  30. FISH OIL [Concomitant]
     Dosage: 1200 MG, TID
  31. XOPENEX HFA [Concomitant]
     Indication: ASTHMA
     Dosage: UNK, PRN
  32. ASPIRIN [Concomitant]
     Dosage: 81 MG, QD

REACTIONS (13)
  - FALL [None]
  - CEREBROVASCULAR ACCIDENT [None]
  - CARDIAC FAILURE [None]
  - UPPER LIMB FRACTURE [None]
  - MIGRAINE [None]
  - FEMUR FRACTURE [None]
  - HEMIPARESIS [None]
  - EMOTIONAL DISTRESS [None]
  - MALAISE [None]
  - FLUID RETENTION [None]
  - MEMORY IMPAIRMENT [None]
  - OVERDOSE [None]
  - INJECTION SITE HAEMATOMA [None]
